FAERS Safety Report 8351081-4 (Version None)
Quarter: 2012Q2

REPORT INFORMATION
  Report Type: 
  Country: None (occurrence: None)
  Receive Date: 20120510
  Receipt Date: 20120504
  Transmission Date: 20120825
  Serious: Yes (Death, Congenital Anomaly)
  Sender: FDA-Public Use
  Company Number: GXKR2012DE001662

PATIENT

DRUGS (4)
  1. HYDROCORTISON                           /CZE/ [Concomitant]
     Dosage: MATERNAL DOSE 35 MG/D
     Route: 064
  2. LAMOTRIGINE [Suspect]
     Dosage: MATERNAL DOSE 325 MG/D
     Route: 064
  3. ASTONIN-H [Concomitant]
     Dosage: MATERNAL DOSE 0.1 MG/D
     Route: 064
  4. DEXAMETHASONE [Concomitant]
     Indication: ADRENOGENITAL SYNDROME
     Dosage: MATERNAL DOSE UNKNOWN
     Route: 064

REACTIONS (6)
  - TALIPES [None]
  - BRACHYCEPHALY [None]
  - CEREBRAL VENTRICLE DILATATION [None]
  - CEREBELLAR HYPOPLASIA [None]
  - RETROGNATHIA [None]
  - OESOPHAGEAL ATRESIA [None]
